FAERS Safety Report 10161273 (Version 1)
Quarter: 2014Q2

REPORT INFORMATION
  Report Type: Spontaneous
  Country: PE (occurrence: PE)
  Receive Date: 20140508
  Receipt Date: 20140508
  Transmission Date: 20141212
  Serious: Yes (Other)
  Sender: FDA-Public Use
  Company Number: PE-PFIZER INC-2014125152

PATIENT
  Sex: Male

DRUGS (2)
  1. ACCUPRIL [Suspect]
     Dosage: 40 MG, 1X/DAY
     Route: 048
     Dates: start: 2010
  2. ASPIRIN [Concomitant]
     Route: 048

REACTIONS (1)
  - Cataract [Recovering/Resolving]
